FAERS Safety Report 8936478 (Version 1)
Quarter: 2012Q4

REPORT INFORMATION
  Report Type: 
  Country: US (occurrence: US)
  Receive Date: 20121130
  Receipt Date: 20121130
  Transmission Date: 20130627
  Serious: Yes (Life-Threatening, Other)
  Sender: FDA-Public Use
  Company Number: US-ELI_LILLY_AND_COMPANY-US201211005699

PATIENT
  Sex: Female
  Weight: 89.8 kg

DRUGS (4)
  1. ZYPREXA [Suspect]
     Indication: DEPRESSION
     Dosage: UNK, unknown
     Dates: start: 2011
  2. ACTOS                                   /UNK/ [Concomitant]
     Indication: DIABETES MELLITUS
     Dosage: UNK, unknown
  3. HYDROCODONE [Concomitant]
     Indication: PAIN
     Dosage: 1 DF, unknown
  4. LYRICA [Concomitant]
     Indication: FIBROMYALGIA
     Dosage: 450 mg, qd
     Dates: start: 2008

REACTIONS (3)
  - Cardiac arrest [Recovered/Resolved]
  - Convulsion [Unknown]
  - Off label use [Unknown]
